FAERS Safety Report 12620049 (Version 1)
Quarter: 2016Q3

REPORT INFORMATION
  Report Type: Spontaneous
  Country: US (occurrence: US)
  Receive Date: 20160803
  Receipt Date: 20160803
  Transmission Date: 20161109
  Serious: No
  Sender: FDA-Public Use
  Company Number: US-ENDO PHARMACEUTICALS INC.-2016-001610

PATIENT
  Sex: Female

DRUGS (1)
  1. TESTOPEL [Suspect]
     Active Substance: TESTOSTERONE
     Route: 065

REACTIONS (2)
  - Accidental exposure to product [Unknown]
  - Laceration [Unknown]

NARRATIVE: CASE EVENT DATE: 201602
